FAERS Safety Report 10079366 (Version 1)
Quarter: 2014Q2

REPORT INFORMATION
  Report Type: Report from Study
  Country: BR (occurrence: BR)
  Receive Date: 20140415
  Receipt Date: 20140415
  Transmission Date: 20141212
  Serious: Yes (Hospitalization, Disabling, Other)
  Sender: FDA-Public Use
  Company Number: PHHY2014BR044998

PATIENT
  Sex: Female
  Weight: 86 kg

DRUGS (5)
  1. DIOVAN TRIPLE [Suspect]
     Indication: HYPERTENSION
     Dosage: 1 DF (160 MG VALS AND 12.5 MG HYDRO AND UNK MG OF AMLO), DAILY
     Route: 048
  2. EUTHYROX [Concomitant]
     Indication: THYROID DISORDER
     Dosage: UNK UKN, UNK
  3. SIMVASTATIN [Concomitant]
     Indication: BLOOD CHOLESTEROL ABNORMAL
     Dosage: UNK UKN, UNK
  4. SELOZOK [Concomitant]
     Indication: HYPERTENSION
     Dosage: UNK UKN, UNK
  5. SELOZOK [Concomitant]
     Indication: CARDIAC DISORDER

REACTIONS (1)
  - Tendon rupture [Recovering/Resolving]
